FAERS Safety Report 17134112 (Version 1)
Quarter: 2019Q4

REPORT INFORMATION
  Report Type: Spontaneous
  Country: RU (occurrence: RU)
  Receive Date: 20191210
  Receipt Date: 20191210
  Transmission Date: 20200122
  Serious: Yes (Hospitalization, Other)
  Sender: FDA-Public Use
  Company Number: RU-ROCHE-2488853

PATIENT
  Age: 40 Year
  Sex: Female

DRUGS (5)
  1. DIMEDROL [Concomitant]
     Active Substance: DIPHENHYDRAMINE
  2. TEMOZOLOMIDE. [Concomitant]
     Active Substance: TEMOZOLOMIDE
  3. ZELBORAF [Suspect]
     Active Substance: VEMURAFENIB
     Indication: ASTROCYTOMA
     Route: 065
     Dates: start: 20191112
  4. COTELLIC [Suspect]
     Active Substance: COBIMETINIB
     Indication: ASTROCYTOMA
     Route: 065
     Dates: start: 20191112
  5. ANALGIN [METAMIZOLE SODIUM] [Concomitant]

REACTIONS (8)
  - Product use in unapproved indication [Unknown]
  - Diarrhoea [Unknown]
  - Body temperature increased [Unknown]
  - Abdominal distension [Unknown]
  - Rash [Recovered/Resolved]
  - Loss of consciousness [Unknown]
  - Off label use [Unknown]
  - Nausea [Unknown]
